FAERS Safety Report 10356305 (Version 1)
Quarter: 2014Q3

REPORT INFORMATION
  Report Type: Spontaneous
  Country: NL (occurrence: NL)
  Receive Date: 20140801
  Receipt Date: 20140801
  Transmission Date: 20150326
  Serious: Yes (Death)
  Sender: FDA-Public Use
  Company Number: NL-AMGEN-NLDSP2014057523

PATIENT
  Age: 62 Year
  Sex: Male

DRUGS (2)
  1. XGEVA [Suspect]
     Active Substance: DENOSUMAB
     Indication: PROPHYLAXIS
     Dosage: 1.7 ML (70 MG/ML), Q4WK
     Route: 058
     Dates: start: 20130201, end: 20140729
  2. ARANESP [Suspect]
     Active Substance: DARBEPOETIN ALFA
     Indication: ANAEMIA
     Dosage: 1 ML (500 MCG/ML) , Q3WK
     Route: 058
     Dates: start: 20140707, end: 20140729

REACTIONS (1)
  - Death [Fatal]

NARRATIVE: CASE EVENT DATE: 20140729
